FAERS Safety Report 7365338-7 (Version None)
Quarter: 2011Q1

REPORT INFORMATION
  Report Type: 
  Country: None (occurrence: None)
  Receive Date: 20110322
  Receipt Date: 20110314
  Transmission Date: 20110831
  Serious: No
  Sender: FDA-Public Use
  Company Number: US-BIOGENIDEC-2011BI009755

PATIENT
  Age: 42 Year
  Sex: Female

DRUGS (5)
  1. TYSABRI [Suspect]
     Route: 042
     Dates: start: 20080108, end: 20091022
  2. TYSABRI [Suspect]
     Route: 042
     Dates: start: 20091101, end: 20101101
  3. AVONEX [Concomitant]
     Route: 030
  4. AVONEX [Concomitant]
     Indication: MULTIPLE SCLEROSIS
     Route: 030
  5. TYSABRI [Suspect]
     Indication: MULTIPLE SCLEROSIS
     Route: 042
     Dates: start: 20101105

REACTIONS (4)
  - COGNITIVE DISORDER [None]
  - ABASIA [None]
  - MULTIPLE SCLEROSIS [None]
  - MOBILITY DECREASED [None]
